FAERS Safety Report 14511000 (Version 1)
Quarter: 2018Q1

REPORT INFORMATION
  Report Type: Spontaneous
  Country: US (occurrence: FR)
  Receive Date: 20180209
  Receipt Date: 20180209
  Transmission Date: 20180509
  Serious: Yes (Hospitalization, Other)
  Sender: FDA-Public Use
  Company Number: US-SUNOVION-2018SUN000491

PATIENT

DRUGS (6)
  1. ZOPICLONE [Suspect]
     Active Substance: ZOPICLONE
     Indication: INSOMNIA
     Dosage: UNK
     Route: 048
     Dates: start: 20171009, end: 20171109
  2. INDACATEROL AND GLYCOPYRROLATE [Suspect]
     Active Substance: GLYCOPYRROLATE\INDACATEROL MALEATE
     Indication: CHRONIC OBSTRUCTIVE PULMONARY DISEASE
     Dosage: UNK
     Route: 055
     Dates: start: 20171009, end: 20171119
  3. PIASCLEDINE [Suspect]
     Active Substance: AVOCADO OIL\SOYBEAN OIL
     Indication: PRODUCT USED FOR UNKNOWN INDICATION
     Route: 048
  4. TRIFLUCAN [Suspect]
     Active Substance: FLUCONAZOLE
     Indication: PHARYNGITIS
     Dosage: 100 MG, UNK
     Dates: start: 20171009, end: 20171023
  5. EXOMUC [Suspect]
     Active Substance: ACETYLCYSTEINE
     Indication: RHINITIS
     Dosage: 3 DF, UNK (GRANULES FOR ORAL SOLUTION)
     Route: 048
     Dates: start: 20171009, end: 20171016
  6. BIRODOGYL [Suspect]
     Active Substance: METRONIDAZOLE\SPIRAMYCIN
     Indication: PHARYNGITIS
     Dosage: UNK (SACHET)
     Route: 048
     Dates: start: 20171009, end: 20171016

REACTIONS (1)
  - Drug reaction with eosinophilia and systemic symptoms [Recovering/Resolving]

NARRATIVE: CASE EVENT DATE: 20171116
